FAERS Safety Report 20947250 (Version 8)
Quarter: 2022Q4

REPORT INFORMATION
  Report Type: Spontaneous
  Country: DE (occurrence: DE)
  Receive Date: 20220610
  Receipt Date: 20221208
  Transmission Date: 20230113
  Serious: Yes (Hospitalization, Other)
  Sender: FDA-Public Use
  Company Number: DE-TAKEDA-2022TUS035180

PATIENT
  Sex: Female

DRUGS (9)
  1. MESALAMINE [Suspect]
     Active Substance: MESALAMINE
     Indication: Colitis ulcerative
     Dosage: 500 MG, QD
  2. PREDNISOLONE [Suspect]
     Active Substance: PREDNISOLONE
     Indication: Product used for unknown indication
     Dosage: 25 MG
  3. ENTYVIO [Suspect]
     Active Substance: VEDOLIZUMAB
     Indication: Colitis ulcerative
     Dosage: INJECTION
     Route: 058
     Dates: start: 202111
  4. ENTYVIO [Suspect]
     Active Substance: VEDOLIZUMAB
     Dosage: INFUSION
     Route: 042
  5. BUDESONIDE [Suspect]
     Active Substance: BUDESONIDE
     Indication: Colitis ulcerative
  6. CORTISONE [Suspect]
     Active Substance: CORTISONE
     Indication: Colitis ulcerative
     Dosage: 20 MG
  7. MOVIPREP [Suspect]
     Active Substance: ASCORBIC ACID\POLYETHYLENE GLYCOL 3350\POTASSIUM CHLORIDE\SODIUM ASCORBATE\SODIUM CHLORIDE\SODIUM SU
     Indication: Product used for unknown indication
  8. AZATHIOPRINE [Concomitant]
     Active Substance: AZATHIOPRINE
  9. SALOFALK [Concomitant]
     Dosage: UNK

REACTIONS (14)
  - Liver function test increased [Unknown]
  - Colitis ulcerative [Unknown]
  - Cholangitis sclerosing [Unknown]
  - Hepatotoxicity [Unknown]
  - Liver disorder [Unknown]
  - COVID-19 [Unknown]
  - Fluid retention [Unknown]
  - Skin disorder [Unknown]
  - Fatigue [Unknown]
  - Muscle spasms [Unknown]
  - Insomnia [Unknown]
  - Nasopharyngitis [Unknown]
  - Vomiting [Unknown]
  - Headache [Unknown]
